FAERS Safety Report 7519509-7 (Version None)
Quarter: 2011Q2

REPORT INFORMATION
  Report Type: 
  Country: None (occurrence: None)
  Receive Date: 20110602
  Receipt Date: 20110526
  Transmission Date: 20111010
  Serious: Yes (Other)
  Sender: FDA-Public Use
  Company Number: IL-EISAI INC-E0800-00077-SPO-IL

PATIENT
  Age: 62 Year
  Sex: Female

DRUGS (9)
  1. BISOPROLOL FUMARATE [Interacting]
     Dosage: UNKNOWN
  2. OPTHALMIC DROPS [Concomitant]
  3. LIPITOR [Concomitant]
  4. PLAQUENIL [Concomitant]
     Dosage: 200 MG DAILY
  5. SALAGEN [Suspect]
     Route: 048
  6. CILARIL PLUS [Concomitant]
     Dosage: 5 MG DAILY
  7. GLYBURIDE [Concomitant]
  8. LOSAC [Concomitant]
  9. LEVOTHYROXINE SODIUM [Concomitant]

REACTIONS (5)
  - ASTHENIA [None]
  - HEMIPLEGIA [None]
  - DIZZINESS [None]
  - HEADACHE [None]
  - DRUG INTERACTION [None]
